FAERS Safety Report 4451540-0 (Version None)
Quarter: 2004Q3

REPORT INFORMATION
  Report Type: 
  Country: None (occurrence: None)
  Receive Date: 20040915
  Receipt Date: 20040831
  Transmission Date: 20050211
  Serious: Yes (Hospitalization, Other)
  Sender: FDA-Public Use
  Company Number: 2004-03866

PATIENT
  Age: 52 Year
  Sex: Female
  Weight: 54.4 kg

DRUGS (5)
  1. PREDNISONE [Suspect]
     Indication: EAR INFECTION
     Dosage: 3 TABLET, DAILY, ORAL;  2 TABLET, DAILY, ORAL;  1 TABLET, DAILY, ORAL
     Route: 048
     Dates: start: 20040817, end: 20040819
  2. PREDNISONE [Suspect]
     Indication: EAR INFECTION
     Dosage: 3 TABLET, DAILY, ORAL;  2 TABLET, DAILY, ORAL;  1 TABLET, DAILY, ORAL
     Route: 048
     Dates: start: 20040820, end: 20040821
  3. PREDNISONE [Suspect]
     Indication: EAR INFECTION
     Dosage: 3 TABLET, DAILY, ORAL;  2 TABLET, DAILY, ORAL;  1 TABLET, DAILY, ORAL
     Route: 048
     Dates: start: 20040822, end: 20040824
  4. FOSAMAX [Concomitant]
  5. PSEUDOEPHEDRINE HCL [Concomitant]

REACTIONS (4)
  - ANXIETY [None]
  - ASTHENIA [None]
  - BLOOD PRESSURE INCREASED [None]
  - URTICARIA [None]
